FAERS Safety Report 4988572-X (Version None)
Quarter: 2006Q2

REPORT INFORMATION
  Report Type: 
  Country: None (occurrence: None)
  Receive Date: 20060426
  Receipt Date: 20060405
  Transmission Date: 20061013
  Serious: Yes (Hospitalization)
  Sender: FDA-Public Use
  Company Number: WAES 0603ESP00045

PATIENT
  Age: 74 Year
  Sex: Male

DRUGS (20)
  1. LEVOFLOXACIN [Suspect]
     Indication: PNEUMONIA
     Dosage: 750 MG/DAILY
     Route: 042
     Dates: start: 20060321, end: 20060325
  2. INFUSION (FORM) PLACEBO [Suspect]
     Indication: PNEUMONIA
     Dosage: IV
     Route: 042
     Dates: start: 20060321, end: 20060325
  3. ACARBOSE [Concomitant]
  4. ALBUTEROL SULFATE AUTOHALER [Concomitant]
  5. ASPIRIN [Concomitant]
  6. ATORVASTATIN CALCIUM [Concomitant]
  7. AZITHROMYCIN [Concomitant]
  8. CEFTOTAXIME SODIUM [Concomitant]
  9. DILTIAZEM HYDROCHLORIDE [Concomitant]
  10. ECHINACEA (UNSPECIFIED) ( + ) SAW PALMETTO [Concomitant]
  11. FORMOTEROL FUMARATE [Concomitant]
  12. GLYBURIDE [Concomitant]
  13. IPRATROPIUM BROMIDE [Concomitant]
  14. MAGNESIUM [Concomitant]
  15. METHYLPREDNISOLONE [Concomitant]
  16. NITROGLYCERIN [Concomitant]
  17. OMEPRAZOLE [Concomitant]
  18. PREDNISONE TAB [Concomitant]
  19. PYGEUM [Concomitant]
  20. TOLBUTAMIDE [Concomitant]

REACTIONS (2)
  - LABORATORY TEST INTERFERENCE [None]
  - MUSCLE HAEMORRHAGE [None]
